FAERS Safety Report 24860299 (Version 1)
Quarter: 2025Q1

REPORT INFORMATION
  Report Type: Report from Study
  Country: CA (occurrence: CA)
  Receive Date: 20250120
  Receipt Date: 20250120
  Transmission Date: 20250408
  Serious: No
  Sender: ROCHE
  Company Number: CA-ROCHE-10000183542

PATIENT
  Sex: Male

DRUGS (1)
  1. OCREVUS [Suspect]
     Active Substance: OCRELIZUMAB
     Indication: Relapsing-remitting multiple sclerosis
     Dosage: 300MG AT DAY 0 AND DAY 14 AND THEN 600MG EVERY 6 MONTHS
     Route: 042
     Dates: start: 20190326

REACTIONS (2)
  - Tooth infection [Recovered/Resolved]
  - Oral candidiasis [Recovering/Resolving]
